FAERS Safety Report 23325794 (Version 1)
Quarter: 2023Q4

REPORT INFORMATION
  Report Type: Spontaneous
  Country: US (occurrence: US)
  Receive Date: 20231221
  Receipt Date: 20231221
  Transmission Date: 20240110
  Serious: Yes (Other)
  Sender: FDA-Public Use
  Company Number: US-ELI_LILLY_AND_COMPANY-US202312008235

PATIENT
  Age: 60 Year
  Sex: Male

DRUGS (1)
  1. HUMALOG KWIKPEN [Suspect]
     Active Substance: INSULIN LISPRO
     Indication: Product used for unknown indication
     Dosage: 25 U, OTHER (WITH EACH MEAL)
     Route: 065

REACTIONS (12)
  - Cerebrovascular accident [Unknown]
  - Blood glucose fluctuation [Unknown]
  - Feeling cold [Unknown]
  - Hyperhidrosis [Unknown]
  - Asthenia [Unknown]
  - Energy increased [Unknown]
  - Dizziness [Unknown]
  - Feeling abnormal [Unknown]
  - Neuropathy peripheral [Unknown]
  - Blood glucose decreased [Unknown]
  - Drug ineffective [Unknown]
  - Blood glucose increased [Unknown]

NARRATIVE: CASE EVENT DATE: 20230214
